FAERS Safety Report 7955189-4 (Version None)
Quarter: 2011Q4

REPORT INFORMATION
  Report Type: 
  Country: None (occurrence: None)
  Receive Date: 20111202
  Receipt Date: 20111123
  Transmission Date: 20120403
  Serious: Yes (Other)
  Sender: FDA-Public Use
  Company Number: PHEH2011US05369

PATIENT
  Sex: Male

DRUGS (9)
  1. AFINITOR [Suspect]
     Dosage: 5 MG, DAILY
     Route: 048
     Dates: start: 20111025
  2. AFINITOR [Suspect]
     Dosage: 10 MG, DAILY
     Route: 048
  3. DEPAKOTE [Concomitant]
  4. TOPAMAX [Concomitant]
  5. AFINITOR [Suspect]
     Indication: ASTROCYTOMA, LOW GRADE
     Dosage: 5 MG, UNK
     Dates: start: 20110611
  6. CLONIDINE [Concomitant]
  7. AFINITOR [Suspect]
     Indication: TUBEROUS SCLEROSIS
     Dosage: 5 MG, MONDAY TO SATURDAY
     Route: 048
     Dates: start: 20110917
  8. M.V.I. [Concomitant]
  9. LAMICTAL [Concomitant]

REACTIONS (7)
  - SCRATCH [None]
  - SOMNOLENCE [None]
  - DIARRHOEA [None]
  - POOR QUALITY SLEEP [None]
  - CONTUSION [None]
  - DRUG LEVEL BELOW THERAPEUTIC [None]
  - CONVULSION [None]
